FAERS Safety Report 21536227 (Version 1)
Quarter: 2022Q4

REPORT INFORMATION
  Report Type: Spontaneous
  Country: US (occurrence: None)
  Receive Date: 20221031
  Receipt Date: 20221031
  Transmission Date: 20230113
  Serious: Yes (Other)
  Sender: FDA-Public Use
  Company Number: None

PATIENT
  Age: 75 Year
  Sex: Female

DRUGS (1)
  1. VYNDAMAX [Suspect]
     Active Substance: TAFAMIDIS
     Dosage: FREQUENCY : DAILY;?
     Route: 048
     Dates: start: 20220315, end: 20220926

REACTIONS (7)
  - Dysphonia [None]
  - Flatulence [None]
  - Hypopnoea [None]
  - Cyanosis [None]
  - Insomnia [None]
  - Vision blurred [None]
  - Secretion discharge [None]
